FAERS Safety Report 6532698-6 (Version None)
Quarter: 2009Q4

REPORT INFORMATION
  Report Type: 
  Country: None (occurrence: None)
  Receive Date: 20091231
  Receipt Date: 20091222
  Transmission Date: 20100525
  Serious: Yes (Hospitalization)
  Sender: FDA-Public Use
  Company Number: 460243

PATIENT
  Age: 4 Year
  Sex: Male

DRUGS (13)
  1. ONDANSETRON INJECTION USP, (MULTI-DOSE VIAL) (ONDANSETRON) [Suspect]
     Indication: DRUG USE FOR UNKNOWN INDICATION
  2. CYTARABINE [Suspect]
     Indication: ACUTE LYMPHOCYTIC LEUKAEMIA
     Dosage: 24 MG TOTAL COURSE DOSE, INTRATHECAL
     Route: 037
     Dates: start: 20090424, end: 20090508
  3. HYDROCORTISONE [Suspect]
     Indication: ACUTE LYMPHOCYTIC LEUKAEMIA
     Dosage: 12 MG TOTAL COURSE DOSE, INTRATHECAL
     Route: 037
     Dates: start: 20090424, end: 20090508
  4. METHOTREXATE [Suspect]
     Indication: ACUTE LYMPHOCYTIC LEUKAEMIA
     Dosage: 12 MG TOTAL COURSE DOSE, INTRATHECAL
     Route: 037
     Dates: start: 20090424, end: 20090508
  5. METHYLPREDNISOLONE SODIUM SUCCINATE FOR INJECTION, 40 MG/VIAL (A-METHA [Suspect]
     Indication: ACUTE LYMPHOCYTIC LEUKAEMIA
     Dosage: INTRAVENOUS
     Route: 042
     Dates: start: 20090507, end: 20090507
  6. VINCRISTINE SULFATE [Suspect]
     Indication: ACUTE LYMPHOCYTIC LEUKAEMIA
     Dosage: 1.92 MG TOTAL COURSE DOSE, INTRAVENOUS
     Route: 042
     Dates: start: 20090424, end: 20090501
  7. (DASATINIB) [Suspect]
     Indication: ACUTE LYMPHOCYTIC LEUKAEMIA
     Dosage: 60 MG/M2, 1 DAY, ORAL
     Route: 048
     Dates: start: 20090424, end: 20090507
  8. DAUNORUBICIN HCL [Suspect]
     Indication: ACUTE LYMPHOCYTIC LEUKAEMIA
     Dosage: 32 MG TOTAL COURSE DOSE, INTRAVENOUS
     Route: 042
     Dates: start: 20090424, end: 20090501
  9. PREDNISONE [Suspect]
     Indication: ACUTE LYMPHOCYTIC LEUKAEMIA
     Dosage: 30 MG/M2 TWICE PER DAY, ORAL
     Route: 048
     Dates: start: 20090424, end: 20090101
  10. BACTRIM [Suspect]
     Indication: DRUG USE FOR UNKNOWN INDICATION
  11. GRANISETRON [Suspect]
     Indication: DRUG USE FOR UNKNOWN INDICATION
  12. NEURONTIN [Suspect]
     Indication: DRUG USE FOR UNKNOWN INDICATION
  13. ZOSYN [Suspect]
     Indication: DRUG USE FOR UNKNOWN INDICATION

REACTIONS (4)
  - HEPATIC STEATOSIS [None]
  - HEPATITIS INFECTIOUS [None]
  - HEPATOMEGALY [None]
  - LYMPHOPENIA [None]
